FAERS Safety Report 9912054 (Version 1)
Quarter: 2014Q1

REPORT INFORMATION
  Report Type: Spontaneous
  Country: US (occurrence: US)
  Receive Date: 20140219
  Receipt Date: 20140219
  Transmission Date: 20141002
  Serious: No
  Sender: FDA-Public Use
  Company Number: US-009507513-1402USA004677

PATIENT
  Age: 60 Year
  Sex: Male

DRUGS (1)
  1. VICTRELIS [Suspect]
     Indication: HEPATITIS C
     Dosage: 800 MG, TID
     Route: 048
     Dates: start: 201401

REACTIONS (5)
  - Skin exfoliation [Unknown]
  - Mood swings [Unknown]
  - Pruritus [Unknown]
  - Dyspnoea [Unknown]
  - Diarrhoea [Unknown]
